FAERS Safety Report 21642989 (Version 2)
Quarter: 2022Q4

REPORT INFORMATION
  Report Type: Spontaneous
  Country: CN (occurrence: CN)
  Receive Date: 20221125
  Receipt Date: 20221201
  Transmission Date: 20230113
  Serious: Yes (Other)
  Sender: FDA-Public Use
  Company Number: CN-002147023-NVSC2022CN263870

PATIENT
  Age: 60 Year
  Sex: Female
  Weight: 46 kg

DRUGS (5)
  1. DEXAMETHASONE\TOBRAMYCIN [Suspect]
     Active Substance: DEXAMETHASONE\TOBRAMYCIN
     Indication: Cataract
     Dosage: 0.3 G, QD
     Route: 047
     Dates: start: 20221108, end: 20221116
  2. DICLOFENAC SODIUM [Concomitant]
     Active Substance: DICLOFENAC SODIUM
     Indication: Pain
     Dosage: 0.01 ML, TID
     Route: 047
     Dates: start: 20221107, end: 20221117
  3. TOBRADEX [Concomitant]
     Active Substance: DEXAMETHASONE\TOBRAMYCIN
     Indication: Adverse drug reaction
     Dosage: 0.050 ML, TID
     Route: 047
     Dates: start: 20221108, end: 20221117
  4. LEVOFLOXACIN [Concomitant]
     Active Substance: LEVOFLOXACIN
     Indication: Cataract
     Dosage: 0.050 ML, QID
     Route: 047
     Dates: start: 20221107, end: 20221117
  5. BOVINE BASIC FIBROBLAST GROWTH FACTOR [Concomitant]
     Indication: Corneal disorder
     Dosage: 0.010 ML, QID
     Route: 047
     Dates: start: 20221108, end: 20221117

REACTIONS (4)
  - Eye pain [Recovering/Resolving]
  - Ocular discomfort [Unknown]
  - Eye irritation [Unknown]
  - Ocular hyperaemia [Unknown]

NARRATIVE: CASE EVENT DATE: 20221109
